FAERS Safety Report 6771998-1 (Version None)
Quarter: 2010Q2

REPORT INFORMATION
  Report Type: 
  Country: None (occurrence: None)
  Receive Date: 20100616
  Receipt Date: 20100115
  Transmission Date: 20101027
  Serious: No
  Sender: FDA-Public Use
  Company Number: US-ASTRAZENECA-2010SE02080

PATIENT
  Sex: Male
  Weight: 115.7 kg

DRUGS (6)
  1. RHINOCORT [Suspect]
     Indication: NASAL CONGESTION
     Route: 045
     Dates: start: 19980101
  2. RHINOCORT [Suspect]
     Indication: SLEEP APNOEA SYNDROME
     Route: 045
     Dates: start: 19980101
  3. WARFARIN [Concomitant]
  4. NASAL SALINE SPRAY [Concomitant]
  5. AMLODIPINE-BENAZ [Concomitant]
  6. LIPITOR [Concomitant]

REACTIONS (3)
  - EPISTAXIS [None]
  - NASAL CONGESTION [None]
  - RHINORRHOEA [None]
